FAERS Safety Report 5444989-0 (Version None)
Quarter: 2007Q3

REPORT INFORMATION
  Report Type: 
  Country: None (occurrence: None)
  Receive Date: 20070904
  Receipt Date: 20070904
  Transmission Date: 20080115
  Serious: Yes (Other)
  Sender: FDA-Public Use
  Company Number: None

PATIENT
  Age: 71 Year
  Sex: Male
  Weight: 78.0187 kg

DRUGS (1)
  1. FOSAMAX [Suspect]
     Indication: OSTEOPOROSIS
     Dosage: 1 1 PO
     Route: 048
     Dates: start: 20070629, end: 20070706

REACTIONS (12)
  - ANISOCYTOSIS [None]
  - ASTHENIA [None]
  - BLOOD COUNT ABNORMAL [None]
  - BONE MARROW DISORDER [None]
  - CONFUSIONAL STATE [None]
  - DEPRESSION [None]
  - ELLIPTOCYTOSIS [None]
  - EPISTAXIS [None]
  - FATIGUE [None]
  - GINGIVAL BLEEDING [None]
  - POIKILOCYTOSIS [None]
  - SUICIDAL IDEATION [None]
